FAERS Safety Report 4562650-1 (Version None)
Quarter: 2005Q1

REPORT INFORMATION
  Report Type: 
  Country: None (occurrence: None)
  Receive Date: 20050124
  Receipt Date: 20050110
  Transmission Date: 20050727
  Serious: Yes (Hospitalization)
  Sender: FDA-Public Use
  Company Number: 2005014042

PATIENT
  Age: 42 Year
  Sex: Male

DRUGS (3)
  1. CORTRIL [Suspect]
     Indication: ECZEMA
     Dosage: TOPICAL
     Route: 061
  2. BETAMETHASONE [Concomitant]
  3. SALICYLIC ACID (SALICYLIC ACID) [Concomitant]

REACTIONS (2)
  - OPEN ANGLE GLAUCOMA [None]
  - TREATMENT NONCOMPLIANCE [None]
